FAERS Safety Report 9641151 (Version 3)
Quarter: 2014Q2

REPORT INFORMATION
  Report Type: Spontaneous
  Country: CA (occurrence: CA)
  Receive Date: 20131023
  Receipt Date: 20140624
  Transmission Date: 20141212
  Serious: Yes (Hospitalization, Other)
  Sender: FDA-Public Use
  Company Number: CA-GILEAD-2013-0083400

PATIENT
  Age: 68 Year
  Sex: Male

DRUGS (23)
  1. AMBRISENTAN [Suspect]
     Indication: PULMONARY ARTERIAL HYPERTENSION
     Dosage: 10 MG, QD
     Route: 048
     Dates: start: 20100831, end: 20130831
  2. AMBRISENTAN [Suspect]
     Dosage: 10 MG, QD
     Route: 048
     Dates: start: 20130906
  3. AMBRISENTAN [Suspect]
     Dosage: 5 MG, QD
     Route: 048
     Dates: start: 20130901, end: 20130905
  4. RAMIPRIL [Concomitant]
  5. IRON [Concomitant]
  6. FUROSEMIDE [Concomitant]
  7. METFORMIN [Concomitant]
     Dosage: 1000MG TWICE PER DAY
  8. METFORMIN [Concomitant]
     Dosage: 1000MG TWICE PER DAY
  9. METFORMIN [Concomitant]
     Dosage: 1000MG TWICE PER DAY
  10. GLUCOSE [Concomitant]
  11. FLOMAX                             /01280302/ [Concomitant]
  12. ACYCLOVIR                          /00587301/ [Concomitant]
  13. ALLOPURINOL [Concomitant]
  14. ALLOPURINOL [Concomitant]
  15. ALLOPURINOL [Concomitant]
  16. REVATIO [Concomitant]
  17. SPIRONOLACTONE [Concomitant]
  18. SPIRONOLACTONE [Concomitant]
  19. SPIRONOLACTONE [Concomitant]
  20. METOPROLOL [Concomitant]
  21. OXYGEN [Concomitant]
  22. CONTINUOUS POSITIVE AIRWAY PRESSURE [Concomitant]
  23. BIPAP [Concomitant]

REACTIONS (6)
  - Dyspnoea [Recovering/Resolving]
  - Dyspnoea [Recovered/Resolved]
  - Urinary retention [Recovered/Resolved]
  - Fluid retention [Recovered/Resolved]
  - Malaise [Recovered/Resolved]
  - Respiratory disorder [Recovered/Resolved]
